FAERS Safety Report 20726859 (Version 2)
Quarter: 2024Q1

REPORT INFORMATION
  Report Type: Spontaneous
  Country: US (occurrence: US)
  Receive Date: 20220419
  Receipt Date: 20240308
  Transmission Date: 20240410
  Serious: No
  Sender: FDA-Public Use
  Company Number: US-JAZZ-2022-US-000397

PATIENT
  Age: 33 Year
  Sex: Female

DRUGS (2)
  1. XYWAV [Suspect]
     Active Substance: CALCIUM OXYBATE\MAGNESIUM OXYBATE\POTASSIUM OXYBATE\SODIUM OXYBATE
     Indication: Product used for unknown indication
     Dosage: UNKNOWN
     Route: 048
  2. HERBALS [Suspect]
     Active Substance: HERBALS
     Indication: Product used for unknown indication

REACTIONS (1)
  - Medication error [Unknown]
